FAERS Safety Report 4890283-6 (Version None)
Quarter: 2006Q1

REPORT INFORMATION
  Report Type: 
  Country: None (occurrence: None)
  Receive Date: 20060124
  Receipt Date: 20051228
  Transmission Date: 20060701
  Serious: No
  Sender: FDA-Public Use
  Company Number: JP-MERCK-0512USA03984M

PATIENT
  Sex: Female

DRUGS (1)
  1. ALDOMET [Suspect]
     Indication: PREGNANCY INDUCED HYPERTENSION
     Route: 048

REACTIONS (3)
  - DRUG EXPOSURE DURING PREGNANCY [None]
  - NO ADVERSE EFFECT [None]
  - OVERDOSE [None]
